FAERS Safety Report 7776596-9 (Version None)
Quarter: 2011Q3

REPORT INFORMATION
  Report Type: 
  Country: None (occurrence: None)
  Receive Date: 20110922
  Receipt Date: 20110907
  Transmission Date: 20111222
  Serious: Yes (Other)
  Sender: FDA-Public Use
  Company Number: 2011P1008771

PATIENT
  Age: 48 Year
  Sex: Male
  Weight: 82.1011 kg

DRUGS (2)
  1. CARBAMAZEPINE [Suspect]
     Indication: EPILEPSY
     Dosage: 200 MG;AM;PO, 400 MG;PM;PO
     Route: 048
     Dates: start: 20110330
  2. CARBAMAZEPINE [Suspect]
     Indication: EPILEPSY
     Dosage: 200 MG;AM;PO, 400 MG;PM;PO
     Route: 048
     Dates: start: 20110330

REACTIONS (2)
  - CONVULSION [None]
  - PRODUCT SUBSTITUTION ISSUE [None]
